FAERS Safety Report 7306926-3 (Version None)
Quarter: 2011Q1

REPORT INFORMATION
  Report Type: 
  Country: None (occurrence: None)
  Receive Date: 20110223
  Receipt Date: 20110208
  Transmission Date: 20110831
  Serious: No
  Sender: FDA-Public Use
  Company Number: US-BIOGENIDEC-2010BI042084

PATIENT
  Age: 41 Year
  Sex: Female

DRUGS (3)
  1. TYSABRI [Suspect]
     Indication: MULTIPLE SCLEROSIS
     Route: 042
     Dates: start: 20101026, end: 20110124
  2. BENADRYL [Concomitant]
     Indication: PREMEDICATION
  3. STEROIDS (NOS) [Concomitant]
     Indication: PREMEDICATION

REACTIONS (15)
  - INFUSION RELATED REACTION [None]
  - HYPERSENSITIVITY [None]
  - BRONCHOSPASM [None]
  - PRURITUS [None]
  - MIGRAINE [None]
  - URTICARIA [None]
  - RASH PRURITIC [None]
  - DYSPNOEA [None]
  - HYPERTENSION [None]
  - HEADACHE [None]
  - ANTIBODY TEST POSITIVE [None]
  - DRUG SPECIFIC ANTIBODY PRESENT [None]
  - PARAESTHESIA [None]
  - COUGH [None]
  - ERYTHEMA [None]
